FAERS Safety Report 5140876-6 (Version None)
Quarter: 2006Q4

REPORT INFORMATION
  Report Type: 
  Country: None (occurrence: None)
  Receive Date: 20060901
  Receipt Date: 20060711
  Transmission Date: 20070319
  Serious: No
  Sender: FDA-Public Use
  Company Number: 2006MP000866

PATIENT
  Age: 53 Year
  Sex: Male
  Weight: 105.6881 kg

DRUGS (4)
  1. DACOGEN [Suspect]
     Indication: ACUTE MYELOID LEUKAEMIA
     Dosage: 40 MG;QD X5DQ28D;IV
     Route: 042
     Dates: start: 20060601
  2. DACOGEN [Suspect]
     Indication: MYELODYSPLASTIC SYNDROME
     Dosage: 40 MG;QD X5DQ28D;IV
     Route: 042
     Dates: start: 20060601
  3. LEVAQUIN [Concomitant]
  4. LASIX [Concomitant]

REACTIONS (2)
  - INCORRECT DRUG ADMINISTRATION RATE [None]
  - OFF LABEL USE [None]
